FAERS Safety Report 5239058-9 (Version None)
Quarter: 2007Q1

REPORT INFORMATION
  Report Type: 
  Country: None (occurrence: None)
  Receive Date: 20061208
  Receipt Date: 20050628
  Transmission Date: 20070707
  Serious: Yes (Other)
  Sender: FDA-Public Use
  Company Number: 2005UW09755

PATIENT
  Age: 66 Year
  Sex: Male
  Weight: 38.914 kg

DRUGS (5)
  1. CRESTOR [Suspect]
     Indication: BLOOD CHOLESTEROL INCREASED
     Dosage: 10 MG HS PO
     Route: 048
     Dates: start: 20050401
  2. TOPROL-XL [Concomitant]
  3. ASPIRIN [Concomitant]
  4. FLUOXETINE [Concomitant]
  5. MULTI-VITAMIN [Concomitant]

REACTIONS (2)
  - ILL-DEFINED DISORDER [None]
  - TREMOR [None]
